FAERS Safety Report 25186018 (Version 1)
Quarter: 2025Q2

REPORT INFORMATION
  Report Type: Spontaneous
  Country: US (occurrence: None)
  Receive Date: 20250410
  Receipt Date: 20250410
  Transmission Date: 20250716
  Serious: Yes (Other)
  Sender: INCYTE
  Company Number: US-INCYTE CORPORATION-2025IN003758

PATIENT
  Weight: 84.671 kg

DRUGS (1)
  1. JAKAFI [Suspect]
     Active Substance: RUXOLITINIB
     Indication: Polycythaemia vera

REACTIONS (4)
  - Polycythaemia vera [Unknown]
  - Full blood count increased [Unknown]
  - Disease progression [Unknown]
  - Drug ineffective [Unknown]
